FAERS Safety Report 6047451-X (Version None)
Quarter: 2009Q1

REPORT INFORMATION
  Report Type: 
  Country: None (occurrence: None)
  Receive Date: 20090122
  Receipt Date: 20090120
  Transmission Date: 20090719
  Serious: No
  Sender: FDA-Public Use
  Company Number: US-B.I. PHARMACEUTICALS,INC./RIDGEFIELD-2009-BP-00757BP

PATIENT
  Age: 80 Year
  Sex: Female

DRUGS (2)
  1. ZANTAC 150 [Suspect]
     Indication: DYSPEPSIA
     Dosage: 300MG
     Route: 048
     Dates: end: 20090107
  2. ZANTAC 150 [Suspect]
     Dosage: 150MG
     Route: 048
     Dates: start: 20090108, end: 20090109

REACTIONS (1)
  - VOMITING [None]
